FAERS Safety Report 6253786-8 (Version None)
Quarter: 2009Q3

REPORT INFORMATION
  Report Type: 
  Country: None (occurrence: None)
  Receive Date: 20090702
  Receipt Date: 20090630
  Transmission Date: 20100115
  Serious: Yes (Other)
  Sender: FDA-Public Use
  Company Number: US-RB-017444-09

PATIENT
  Age: 26 Year
  Sex: Male

DRUGS (1)
  1. SUBOXONE [Suspect]
     Indication: DRUG DEPENDENCE
     Dosage: PATIENT TOOK 8 TO 12 MG DAILY.
     Route: 060
     Dates: start: 20090625, end: 20090628

REACTIONS (2)
  - HALLUCINATION [None]
  - INSOMNIA [None]
